FAERS Safety Report 23810233 (Version 1)
Quarter: 2024Q2

REPORT INFORMATION
  Report Type: Spontaneous
  Country: US (occurrence: US)
  Receive Date: 20240502
  Receipt Date: 20240502
  Transmission Date: 20240715
  Serious: Yes (Other)
  Sender: FDA-Public Use
  Company Number: US-FreseniusKabi-FK202406998

PATIENT
  Age: 33 Year
  Sex: Male

DRUGS (4)
  1. HYDROMORPHONE [Suspect]
     Active Substance: HYDROMORPHONE
     Indication: Pain
     Dosage: CONTINUOUS INFUSION?WITH AS NEEDED BOLUSES
  2. HYDROMORPHONE [Suspect]
     Active Substance: HYDROMORPHONE
     Indication: Acute chest syndrome
     Dosage: CONTINUOUS INFUSION?WITH AS NEEDED BOLUSES?OPIOID DOSE ESCALATION
  3. KETAMINE [Concomitant]
     Active Substance: KETAMINE
     Indication: Pain
     Dosage: LOW-DOSE?INFUSION
  4. BENZODIAZEPINE [Concomitant]
     Active Substance: BENZODIAZEPINE
     Indication: Product used for unknown indication

REACTIONS (3)
  - Rhabdomyolysis [Recovered/Resolved]
  - Encephalopathy [Recovering/Resolving]
  - Hyperaesthesia [Unknown]
